FAERS Safety Report 8889116 (Version 1)
Quarter: 2012Q4

REPORT INFORMATION
  Report Type: 
  Country: JP (occurrence: JP)
  Receive Date: 20121106
  Receipt Date: 20121106
  Transmission Date: 20130627
  Serious: Yes (Life-Threatening, Hospitalization)
  Sender: FDA-Public Use
  Company Number: JP-PFIZER INC-2012066628

PATIENT
  Age: 65 Year
  Sex: Female
  Weight: 52 kg

DRUGS (2)
  1. AZULFIDINE EN [Suspect]
     Indication: RHEUMATOID ARTHRITIS
     Dosage: 500 mg, 2x/day
     Route: 048
     Dates: start: 20120210, end: 20120302
  2. MOBIC [Concomitant]
     Dosage: 10 mg, 1x/day
     Route: 048
     Dates: start: 20120210, end: 20120302

REACTIONS (3)
  - Agranulocytosis [Recovered/Resolved]
  - Pneumonia bacterial [Recovered/Resolved]
  - Infectious pleural effusion [Recovered/Resolved]
